FAERS Safety Report 6372107-3 (Version None)
Quarter: 2009Q3

REPORT INFORMATION
  Report Type: 
  Country: None (occurrence: None)
  Receive Date: 20090917
  Receipt Date: 20090908
  Transmission Date: 20100115
  Serious: Yes (Other)
  Sender: FDA-Public Use
  Company Number: GXKR2009GB10012

PATIENT
  Sex: Male
  Weight: 72 kg

DRUGS (2)
  1. PROPRANOLOL [Suspect]
     Indication: ANXIETY
     Dosage: 40 MG, ORAL
     Route: 048
     Dates: start: 20090825, end: 20090825
  2. IMIGRANE (SUMATRIPTAN SUCCINATE) [Concomitant]

REACTIONS (3)
  - ABNORMAL BEHAVIOUR [None]
  - ANGER [None]
  - PARANOIA [None]
